FAERS Safety Report 14226345 (Version 2)
Quarter: 2018Q2

REPORT INFORMATION
  Report Type: Report from Study
  Country: US (occurrence: US)
  Receive Date: 20171127
  Receipt Date: 20180615
  Transmission Date: 20180711
  Serious: Yes (Other)
  Sender: FDA-Public Use
  Company Number: PHEH2017US037890

PATIENT
  Sex: Female

DRUGS (1)
  1. GLEEVEC [Suspect]
     Active Substance: IMATINIB MESYLATE
     Indication: SARCOMA
     Dosage: UNK
     Route: 065

REACTIONS (3)
  - Sinusitis [Recovered/Resolved]
  - Neoplasm malignant [Unknown]
  - Product use in unapproved indication [Unknown]
